FAERS Safety Report 8469821-2 (Version None)
Quarter: 2012Q2

REPORT INFORMATION
  Report Type: 
  Country: None (occurrence: None)
  Receive Date: 20120626
  Receipt Date: 20120620
  Transmission Date: 20120825
  Serious: Yes (Hospitalization, Other)
  Sender: FDA-Public Use
  Company Number: US-RB-041624-12

PATIENT
  Age: 50 Year
  Sex: Female

DRUGS (1)
  1. SUBOXONE [Suspect]
     Indication: DRUG DEPENDENCE
     Dosage: UNKNOWN DOSAGE DETAILS
     Route: 065

REACTIONS (6)
  - HEADACHE [None]
  - VAGINAL HAEMORRHAGE [None]
  - INSOMNIA [None]
  - ASTHENIA [None]
  - DIARRHOEA [None]
  - NAUSEA [None]
